FAERS Safety Report 6638136-7 (Version None)
Quarter: 2010Q1

REPORT INFORMATION
  Report Type: 
  Country: None (occurrence: None)
  Receive Date: 20100312
  Receipt Date: 20100308
  Transmission Date: 20100710
  Serious: Yes (Hospitalization, Other)
  Sender: FDA-Public Use
  Company Number: WAES 1003USA01045

PATIENT
  Age: 63 Year
  Sex: Female
  Weight: 54.8852 kg

DRUGS (7)
  1. CAP VORINOSTAT 100 MG [Suspect]
     Indication: NON-SMALL CELL LUNG CANCER
     Dosage: 400 MG/DAILY/PO
     Route: 048
     Dates: start: 20100216, end: 20100227
  2. VELCADE [Suspect]
     Indication: NON-SMALL CELL LUNG CANCER
     Dosage: 1.3MG/M[2]/DAILY/IV
     Route: 042
     Dates: start: 20100216, end: 20100226
  3. CELEXA [Concomitant]
  4. COMPAZINE [Concomitant]
  5. PERCOCET [Concomitant]
  6. HERBS (UNSPECIFIED) [Concomitant]
  7. LORAZEPAM [Concomitant]

REACTIONS (3)
  - CONFUSIONAL STATE [None]
  - DELIRIUM [None]
  - HALLUCINATION [None]
